FAERS Safety Report 6311807-8 (Version None)
Quarter: 2009Q3

REPORT INFORMATION
  Report Type: 
  Country: None (occurrence: None)
  Receive Date: 20090813
  Receipt Date: 20090813
  Transmission Date: 20100115
  Serious: Yes (Other)
  Sender: FDA-Public Use
  Company Number: None

PATIENT
  Age: 43 Year
  Sex: Female
  Weight: 72.5755 kg

DRUGS (1)
  1. MYCOPHENOLATE MOFETIL [Suspect]
     Indication: RENAL TRANSPLANT
     Dosage: 500 MG 1 EVERY 12 HR 047
     Dates: start: 20090706, end: 20090714

REACTIONS (3)
  - ASTHENIA [None]
  - DIARRHOEA [None]
  - PRODUCT SUBSTITUTION ISSUE [None]
